FAERS Safety Report 8360870-1 (Version None)
Quarter: 2012Q2

REPORT INFORMATION
  Report Type: 
  Country: None (occurrence: None)
  Receive Date: 20120515
  Receipt Date: 20120504
  Transmission Date: 20120825
  Serious: Yes (Death, Other)
  Sender: FDA-Public Use
  Company Number: IT-CELGENEUS-083-50794-12050784

PATIENT
  Age: 64 Year
  Sex: Male

DRUGS (2)
  1. VIDAZA [Suspect]
     Dosage: 75 MILLIGRAM/SQ. METER
     Route: 058
     Dates: start: 20100101
  2. VIDAZA [Suspect]
     Dosage: THRID OF INITIAL DOSE
     Route: 058

REACTIONS (6)
  - LEUKOPENIA [None]
  - THROMBOCYTOPENIA [None]
  - OESOPHAGEAL VARICES HAEMORRHAGE [None]
  - CHRONIC MYELOMONOCYTIC LEUKAEMIA [None]
  - NEUTROPHIL COUNT DECREASED [None]
  - ANAEMIA [None]
